FAERS Safety Report 14320148 (Version 1)
Quarter: 2017Q4

REPORT INFORMATION
  Report Type: Spontaneous
  Country: US (occurrence: US)
  Receive Date: 20171222
  Receipt Date: 20171222
  Transmission Date: 20180321
  Serious: No
  Sender: FDA-Public Use
  Company Number: None

PATIENT
  Age: 58 Year
  Sex: Female

DRUGS (1)
  1. HUMIRA [Suspect]
     Active Substance: ADALIMUMAB
     Indication: PYODERMA
     Dosage: 160MG DAY 1 SC
     Route: 058
     Dates: start: 20171201

REACTIONS (2)
  - Diarrhoea haemorrhagic [None]
  - Abdominal pain upper [None]

NARRATIVE: CASE EVENT DATE: 20171206
